FAERS Safety Report 10415505 (Version 1)
Quarter: 2014Q3

REPORT INFORMATION
  Report Type: Spontaneous
  Country: FR (occurrence: None)
  Receive Date: 20140826
  Receipt Date: 20140826
  Transmission Date: 20150326
  Serious: Yes (Hospitalization, Other)
  Sender: FDA-Public Use
  Company Number: 2014-20201

PATIENT
  Age: 70 Year
  Sex: Male

DRUGS (12)
  1. 5 FU (FLUOROURACIL) [Suspect]
     Active Substance: FLUOROURACIL
     Indication: COLORECTAL CANCER METASTATIC
     Dates: start: 20140717, end: 20140717
  2. CALCIUM CHANNEL BLOCKERS (CALCIUM CHANNEL BLOCKERS) [Concomitant]
  3. SEROTONIN ANTAGONISTS (SEROTONIN ANTAGONISTS) [Concomitant]
  4. AFLIBERCEPT [Suspect]
     Active Substance: AFLIBERCEPT
     Indication: COLORECTAL CANCER METASTATIC
     Dosage: EVERY CYCLE
     Route: 041
     Dates: start: 20140717, end: 20140717
  5. IRINOTECAN (IRINOTECAN) [Suspect]
     Active Substance: IRINOTECAN
     Indication: COLORECTAL CANCER METASTATIC
     Dosage: EVERY CYCLE
     Route: 041
     Dates: start: 20140717, end: 20140717
  6. ANTIHISTAMINES (ANTIHISTAMINES) [Concomitant]
  7. RANITIDINE [Concomitant]
     Active Substance: RANITIDINE\RANITIDINE HYDROCHLORIDE
  8. METOCLOPRAMIDE (METOCLOPRAMIDE) [Concomitant]
     Active Substance: METOCLOPRAMIDE
  9. LEUCOVORIN (FOLINIC ACID) [Suspect]
     Active Substance: LEUCOVORIN
     Indication: COLORECTAL CANCER METASTATIC
     Dosage: EVERY CYCLE
     Route: 041
     Dates: start: 20140717, end: 20140717
  10. CORTICOSTEROID NOS (CORTICOSTEROID NOS) [Concomitant]
  11. LOPERAMIDE (LOPERAMIDE) [Concomitant]
     Active Substance: LOPERAMIDE
  12. LORAZEPAM (LORAZEPAM) [Concomitant]
     Active Substance: LORAZEPAM

REACTIONS (2)
  - Phlebitis [None]
  - Phlebitis infective [None]

NARRATIVE: CASE EVENT DATE: 20140727
